FAERS Safety Report 10238596 (Version 2)
Quarter: 2014Q2

REPORT INFORMATION
  Report Type: Spontaneous
  Country: GB (occurrence: GB)
  Receive Date: 20140616
  Receipt Date: 20140616
  Transmission Date: 20141212
  Serious: Yes (Other)
  Sender: FDA-Public Use
  Company Number: GB-ASTELLAS-2014EU004016

PATIENT
  Age: 64 Year
  Sex: Female

DRUGS (1)
  1. BETMIGA [Suspect]
     Indication: HYPERTONIC BLADDER
     Dosage: 50 MG, DAILY
     Route: 048

REACTIONS (1)
  - Haematuria [Recovered/Resolved]
